FAERS Safety Report 16505785 (Version 1)
Quarter: 2019Q3

REPORT INFORMATION
  Report Type: Spontaneous
  Country: US (occurrence: US)
  Receive Date: 20190701
  Receipt Date: 20190701
  Transmission Date: 20191004
  Serious: No
  Sender: FDA-Public Use
  Company Number: US-PERRIGO-19US002703

PATIENT
  Age: 70 Year
  Sex: Female
  Weight: 95.24 kg

DRUGS (2)
  1. LOPERAMIDE HYDROCHLORIDE. [Suspect]
     Active Substance: LOPERAMIDE HYDROCHLORIDE
     Indication: DIARRHOEA
     Dosage: 4 MG, SINGLE, AFTER FIRST LOOSE STOOL
     Route: 048
     Dates: start: 20190223, end: 20190223
  2. LOPERAMIDE HYDROCHLORIDE. [Suspect]
     Active Substance: LOPERAMIDE HYDROCHLORIDE
     Dosage: 2 MG AFTER 2ND LOOSE STOOL, 1 MG THREE TIMES, AFTER SUBSEQUENT LOOSE STOOLS
     Route: 048
     Dates: start: 20190224, end: 20190224

REACTIONS (1)
  - Intentional product use issue [Recovered/Resolved]

NARRATIVE: CASE EVENT DATE: 20190224
